FAERS Safety Report 5677863-5 (Version None)
Quarter: 2008Q1

REPORT INFORMATION
  Report Type: 
  Country: None (occurrence: None)
  Receive Date: 20080319
  Receipt Date: 20080312
  Transmission Date: 20080703
  Serious: Yes (Other)
  Sender: FDA-Public Use
  Company Number: CHPA2008US04589

PATIENT
  Age: 33 Year
  Sex: Male

DRUGS (1)
  1. THERAFLU FLU AND SORE THROAT (NCH) (PHENIRAMINE MALEATE, PHENYLEPHRINE [Suspect]
     Indication: NASOPHARYNGITIS
     Dosage: 1 DF, Q4H, ORAL
     Route: 048
     Dates: start: 20080308

REACTIONS (2)
  - BLOOD PRESSURE INCREASED [None]
  - DIZZINESS [None]
